FAERS Safety Report 17784295 (Version 1)
Quarter: 2020Q2

REPORT INFORMATION
  Report Type: Spontaneous
  Country: US (occurrence: US)
  Receive Date: 20200514
  Receipt Date: 20200514
  Transmission Date: 20200714
  Serious: Yes (Other)
  Sender: FDA-Public Use
  Company Number: None

PATIENT
  Age: 54 Year
  Sex: Female
  Weight: 61.65 kg

DRUGS (8)
  1. PROPRANOLOL [Concomitant]
     Active Substance: PROPRANOLOL HYDROCHLORIDE
  2. MTX [Concomitant]
     Active Substance: METHOTREXATE SODIUM
  3. ALMOTRIPTAN-MALATE [Suspect]
     Active Substance: ALMOTRIPTAN MALATE
     Indication: MIGRAINE
     Dosage: FREQUENCY:REPEAT IN 2 HOURS;?
     Route: 048
     Dates: start: 20200510, end: 20200512
  4. HYDROXYCHLOROQUINE [Concomitant]
     Active Substance: HYDROXYCHLOROQUINE
  5. FOLIC ACID. [Concomitant]
     Active Substance: FOLIC ACID
  6. VITAMIN B12 [Concomitant]
     Active Substance: CYANOCOBALAMIN
  7. MAGNESIUM [Concomitant]
     Active Substance: MAGNESIUM
  8. PROLIA [Concomitant]
     Active Substance: DENOSUMAB

REACTIONS (4)
  - Neck pain [None]
  - Chest discomfort [None]
  - Discomfort [None]
  - Feeling abnormal [None]

NARRATIVE: CASE EVENT DATE: 20200513
